FAERS Safety Report 17215844 (Version 1)
Quarter: 2019Q4

REPORT INFORMATION
  Report Type: Spontaneous
  Country: US (occurrence: US)
  Receive Date: 20191230
  Receipt Date: 20191230
  Transmission Date: 20200122
  Serious: Yes (Hospitalization)
  Sender: FDA-Public Use
  Company Number: US-TEVA-2019-US-1160084

PATIENT
  Age: 12 Year
  Sex: Male
  Weight: 43 kg

DRUGS (8)
  1. NEOSTIGMINE. [Suspect]
     Active Substance: NEOSTIGMINE METHYLSULFATE
     Dosage: MAXIMUM DOSE 0.009 MG/KG/H
     Route: 050
  2. METHADONE [Suspect]
     Active Substance: METHADONE HYDROCHLORIDE
     Indication: POSTOPERATIVE ANALGESIA
     Dosage: 8 MILLIGRAM DAILY; ADMINISTERED OVER POST-OPERATIVE DAYS 19-27; MAX DOSE 4 MG TWICE DAILY
     Route: 065
  3. HYDROMORPHONE [Suspect]
     Active Substance: HYDROMORPHONE
     Indication: POSTOPERATIVE ANALGESIA
     Dosage: ADMINISTERED OVER POST-OPERATIVE DAYS 2-40; MAXIMUM DOSE 0.3 MG BASAL, 0.35 MG/DOSE AS REQUIRED
     Route: 065
  4. NEOSTIGMINE. [Suspect]
     Active Substance: NEOSTIGMINE METHYLSULFATE
     Indication: POSTOPERATIVE ILEUS
     Dosage: DOSE: STARTING DOSE 0.007 MG/KG/H (POSTOPERATIVE DAY 34)
     Route: 050
  5. DEXMEDETOMIDINE. [Concomitant]
     Active Substance: DEXMEDETOMIDINE
     Indication: POSTOPERATIVE ANALGESIA
     Dosage: DOSE: MAX DOSE 1.5 MCG/KG/H; ADMINISTERED 5 DAYS PREOPERATIVELY TO POST-OPERATIVE DAY 34; TURNED ...
     Route: 065
  6. FENTANYL. [Suspect]
     Active Substance: FENTANYL
     Indication: POSTOPERATIVE ANALGESIA
     Dosage: ADMINISTERED OVER POST-OPERATIVE DAYS 0-2; MAXIMUM DOSE 4 MCG/KG/H
     Route: 050
  7. FENTANYL. [Suspect]
     Active Substance: FENTANYL
     Dosage: DOSE: 1 MCG/KG/ DOSE
     Route: 040
  8. MORPHINE [Suspect]
     Active Substance: MORPHINE
     Indication: POSTOPERATIVE ANALGESIA
     Dosage: DOSE: 2 MG/DOSE EVERY 2H AS REQUIRED
     Route: 065

REACTIONS (4)
  - Off label use [Unknown]
  - Postoperative ileus [Recovered/Resolved]
  - Abdominal compartment syndrome [Recovered/Resolved]
  - Abdominal pain [Unknown]
